FAERS Safety Report 10209462 (Version 2)
Quarter: 2014Q2

REPORT INFORMATION
  Report Type: Spontaneous
  Country: US (occurrence: US)
  Receive Date: 20140601
  Receipt Date: 20140630
  Transmission Date: 20141212
  Serious: No
  Sender: FDA-Public Use
  Company Number: US-TEVA-482805USA

PATIENT
  Sex: Female
  Weight: 90.8 kg

DRUGS (12)
  1. NUVIGIL [Suspect]
     Indication: FATIGUE
     Dates: start: 20140424
  2. WEEKLY ALLERGY SHOTS [Suspect]
     Indication: ALLERGY TO ANIMAL
  3. WEEKLY ALLERGY SHOTS [Suspect]
     Indication: SEASONAL ALLERGY
  4. WEEKLY ALLERGY SHOTS [Suspect]
     Indication: SEASONAL ALLERGY
  5. GABAPENTIN [Concomitant]
     Indication: MUSCLE SPASMS
     Dosage: 3 GRAM DAILY;
  6. WELCHOL [Concomitant]
     Indication: BLOOD CHOLESTEROL INCREASED
  7. DIAZEPAM [Concomitant]
     Indication: MUSCLE SPASMS
     Dosage: AT BEDTIME
  8. LISINOPRIL [Concomitant]
     Indication: HYPERTENSION
  9. METFORMIN [Concomitant]
     Indication: GLUCOSE TOLERANCE IMPAIRED
     Dosage: 750 MILLIGRAM DAILY;
  10. VITAMIN D [Concomitant]
  11. FISH OIL [Concomitant]
  12. CLARITIN [Concomitant]
     Indication: HYPERSENSITIVITY

REACTIONS (6)
  - Neuralgia [Not Recovered/Not Resolved]
  - Pain [Not Recovered/Not Resolved]
  - Feeling of body temperature change [Not Recovered/Not Resolved]
  - Injection site pain [Not Recovered/Not Resolved]
  - Therapeutic response changed [Not Recovered/Not Resolved]
  - Off label use [Unknown]
